FAERS Safety Report 12884248 (Version 2)
Quarter: 2016Q4

REPORT INFORMATION
  Report Type: Spontaneous
  Country: US (occurrence: US)
  Receive Date: 20161026
  Receipt Date: 20161122
  Transmission Date: 20170207
  Serious: No
  Sender: FDA-Public Use
  Company Number: US-ALEXION PHARMACEUTICALS INC.-A201608092

PATIENT
  Age: 18 Year
  Sex: Female

DRUGS (2)
  1. STRENSIQ [Suspect]
     Active Substance: ASFOTASE ALFA
     Indication: HYPOPHOSPHATASIA
     Dosage: UNK
     Route: 058
     Dates: start: 201603
  2. STRENSIQ [Suspect]
     Active Substance: ASFOTASE ALFA
     Dosage: UNK
     Route: 058
     Dates: start: 201603

REACTIONS (5)
  - Product physical consistency issue [Unknown]
  - Incorrect product storage [Unknown]
  - Injection site reaction [Not Recovered/Not Resolved]
  - Product packaging issue [Unknown]
  - Malaise [Unknown]

NARRATIVE: CASE EVENT DATE: 20160930
